FAERS Safety Report 4916762-0 (Version None)
Quarter: 2006Q1

REPORT INFORMATION
  Report Type: 
  Country: None (occurrence: None)
  Receive Date: 20060220
  Receipt Date: 20060131
  Transmission Date: 20060701
  Serious: Yes (Other)
  Sender: FDA-Public Use
  Company Number: JP-ROCHE-434971

PATIENT
  Age: 8 Year
  Sex: Male
  Weight: 23 kg

DRUGS (3)
  1. TAMIFLU [Suspect]
     Route: 048
     Dates: start: 20060130, end: 20060130
  2. TRANSAMIN [Concomitant]
     Route: 048
     Dates: start: 20060130, end: 20060202
  3. ZESULAN [Concomitant]
     Route: 048
     Dates: start: 20060130, end: 20060202

REACTIONS (8)
  - ABDOMINAL PAIN [None]
  - ABNORMAL BEHAVIOUR [None]
  - AMNESIA [None]
  - DIARRHOEA [None]
  - EXCITABILITY [None]
  - EYE DISORDER [None]
  - HYPERSOMNIA [None]
  - SCREAMING [None]
